FAERS Safety Report 8918791 (Version 1)
Quarter: 2012Q4

REPORT INFORMATION
  Report Type: 
  Country: US (occurrence: US)
  Receive Date: 20121120
  Receipt Date: 20121120
  Transmission Date: 20130627
  Serious: No
  Sender: FDA-Public Use
  Company Number: US-ASTRAZENECA-2012SE21067

PATIENT
  Age: 75 Year
  Sex: Female
  Weight: 66.7 kg

DRUGS (2)
  1. NEXIUM [Suspect]
     Indication: DYSPEPSIA
     Route: 048
     Dates: start: 2008
  2. NEXIUM [Suspect]
     Indication: DYSPEPSIA
     Route: 048

REACTIONS (3)
  - Sleep disorder due to a general medical condition [Unknown]
  - Therapeutic response decreased [Not Recovered/Not Resolved]
  - Off label use [Unknown]
